FAERS Safety Report 12208410 (Version 1)
Quarter: 2016Q1

REPORT INFORMATION
  Report Type: Spontaneous
  Country: DE (occurrence: DE)
  Receive Date: 20160324
  Receipt Date: 20160324
  Transmission Date: 20160526
  Serious: Yes (Other)
  Sender: FDA-Public Use
  Company Number: DE-TEVA-645072GER

PATIENT
  Age: 1 Day
  Sex: Male
  Weight: 2.71 kg

DRUGS (8)
  1. CLEXANE 40 [Concomitant]
     Indication: FACTOR V DEFICIENCY
     Dosage: 40 MILLIGRAM DAILY;
     Route: 064
  2. FLUOMIZIN [Concomitant]
     Indication: BACTERIAL VAGINOSIS
     Dosage: 10 MILLIGRAM DAILY;
     Route: 064
  3. BIOFANAL [Concomitant]
     Indication: VULVOVAGINAL MYCOTIC INFECTION
     Route: 064
  4. AMOXIHEXAL [Concomitant]
     Active Substance: AMOXICILLIN
     Indication: SINUSITIS
     Dosage: 3000 MILLIGRAM DAILY;
     Route: 064
  5. FOLIO [Concomitant]
     Active Substance: FOLIC ACID
     Indication: PROPHYLAXIS OF NEURAL TUBE DEFECT
     Dosage: .4 MILLIGRAM DAILY;
     Route: 064
     Dates: start: 20150214, end: 20150527
  6. L-THYROXIN [Concomitant]
     Active Substance: LEVOTHYROXINE SODIUM
     Indication: HYPOTHYROIDISM
     Dosage: 75 MICROGRAM DAILY; IN THE BEGINNING 25 MICROGRAM/D LATER DOSAGE INCREASED TO 75 MICROGRAM/D
     Route: 064
     Dates: start: 20150214, end: 20151129
  7. CITALOPRAM [Suspect]
     Active Substance: CITALOPRAM HYDROBROMIDE
     Indication: ANXIETY DISORDER
     Dosage: 40 MILLIGRAM DAILY;
     Route: 064
     Dates: start: 20150214, end: 20151129
  8. QUENSYL [Suspect]
     Active Substance: HYDROXYCHLOROQUINE
     Indication: SYSTEMIC LUPUS ERYTHEMATOSUS
     Dosage: 200 MILLIGRAM DAILY;
     Route: 064

REACTIONS (2)
  - Foetal exposure during pregnancy [Unknown]
  - Small for dates baby [Unknown]

NARRATIVE: CASE EVENT DATE: 20151129
